FAERS Safety Report 9817033 (Version 2)
Quarter: 2014Q3

REPORT INFORMATION
  Report Type: Spontaneous
  Country: US (occurrence: US)
  Receive Date: 20140114
  Receipt Date: 20140902
  Transmission Date: 20150326
  Serious: Yes (Hospitalization, Other)
  Sender: FDA-Public Use
  Company Number: US-009507513-1401USA003437

PATIENT
  Sex: Female

DRUGS (1)
  1. NUVARING [Suspect]
     Active Substance: ETHINYL ESTRADIOL\ETONOGESTREL
     Indication: CONTRACEPTION
     Route: 067

REACTIONS (20)
  - Menorrhagia [Unknown]
  - Loss of consciousness [Unknown]
  - Dizziness [Unknown]
  - Heart valve incompetence [Unknown]
  - Asthenia [Unknown]
  - Dizziness [Unknown]
  - Gastrooesophageal reflux disease [Unknown]
  - Syncope [Unknown]
  - Bunion operation [Unknown]
  - Acute myocardial infarction [Unknown]
  - Head injury [Unknown]
  - Syncope [Unknown]
  - Pelvic pain [Unknown]
  - Convulsion [Unknown]
  - Fatigue [Unknown]
  - Cerebrovascular accident [Unknown]
  - Migraine [Unknown]
  - Tension headache [Unknown]
  - Hypertension [Unknown]
  - Dysmenorrhoea [Unknown]

NARRATIVE: CASE EVENT DATE: 200408
